FAERS Safety Report 6610854-6 (Version None)
Quarter: 2010Q1

REPORT INFORMATION
  Report Type: 
  Country: None (occurrence: None)
  Receive Date: 20100302
  Receipt Date: 20100216
  Transmission Date: 20100710
  Serious: Yes (Other)
  Sender: FDA-Public Use
  Company Number: US-SANOFI-AVENTIS-A03200901817

PATIENT
  Age: 73 Year
  Sex: Male
  Weight: 72.6 kg

DRUGS (8)
  1. ALFUZOSIN HYDROCHLORIDE [Suspect]
     Dosage: UNIT DOSE: 10 MG
     Route: 048
     Dates: start: 20090420, end: 20090423
  2. ALFUZOSIN HYDROCHLORIDE [Suspect]
     Dosage: UNIT DOSE: 10 MG
     Route: 048
     Dates: start: 20090420, end: 20090423
  3. AVODART [Suspect]
     Route: 065
     Dates: end: 20090101
  4. LIPITOR [Concomitant]
     Route: 048
  5. RAMIPRIL [Concomitant]
     Indication: HYPERTENSION
     Route: 048
  6. ASPIRIN [Concomitant]
     Dates: start: 20001122
  7. VITAMIN D [Concomitant]
  8. SAW PALMETTO [Concomitant]
     Indication: NOCTURIA
     Dates: start: 20071001

REACTIONS (21)
  - ANXIETY [None]
  - BACK PAIN [None]
  - COORDINATION ABNORMAL [None]
  - DEPRESSED LEVEL OF CONSCIOUSNESS [None]
  - FEELING ABNORMAL [None]
  - HEADACHE [None]
  - HYPOAESTHESIA [None]
  - HYPOREFLEXIA [None]
  - MIDDLE INSOMNIA [None]
  - MUSCLE SPASMS [None]
  - MUSCLE STRAIN [None]
  - MUSCULOSKELETAL PAIN [None]
  - MUSCULOSKELETAL STIFFNESS [None]
  - NAUSEA [None]
  - NECK PAIN [None]
  - NOCTURIA [None]
  - PYREXIA [None]
  - ROAD TRAFFIC ACCIDENT [None]
  - SEXUAL DYSFUNCTION [None]
  - TREMOR [None]
  - WHIPLASH INJURY [None]
